FAERS Safety Report 7344784-1 (Version None)
Quarter: 2011Q1

REPORT INFORMATION
  Report Type: 
  Country: None (occurrence: None)
  Receive Date: 20110310
  Receipt Date: 20110227
  Transmission Date: 20110831
  Serious: Yes (Other)
  Sender: FDA-Public Use
  Company Number: BR-JNJFOC-20101202710

PATIENT
  Sex: Male
  Weight: 53 kg

DRUGS (6)
  1. AZATHIOPRINE [Concomitant]
  2. REMICADE [Suspect]
     Route: 042
  3. ALENDRONATE [Concomitant]
  4. CALCIUM AND VITAMIN D [Concomitant]
  5. REMICADE [Suspect]
     Indication: CROHN'S DISEASE
     Dosage: 27 INFUSIONS
     Route: 042
  6. MESALAZINE [Concomitant]

REACTIONS (2)
  - PLATELET COUNT DECREASED [None]
  - NEOPLASM MALIGNANT [None]
